FAERS Safety Report 19257894 (Version 1)
Quarter: 2021Q2

REPORT INFORMATION
  Report Type: Spontaneous
  Country: US (occurrence: US)
  Receive Date: 20210514
  Receipt Date: 20210514
  Transmission Date: 20210717
  Serious: No
  Sender: FDA-Public Use
  Company Number: None

PATIENT
  Age: 70 Year
  Sex: Male
  Weight: 157 kg

DRUGS (1)
  1. CHLORTHALIDONE (CHLORTHALIDONE 50MG TAB) [Suspect]
     Active Substance: CHLORTHALIDONE
     Indication: HYPERTENSION
     Route: 048
     Dates: start: 20150504, end: 20191010

REACTIONS (3)
  - Pancreatitis [None]
  - Dyspnoea [None]
  - Constipation [None]

NARRATIVE: CASE EVENT DATE: 20191010
